FAERS Safety Report 8559564-9 (Version None)
Quarter: 2012Q3

REPORT INFORMATION
  Report Type: 
  Country: None (occurrence: None)
  Receive Date: 20120802
  Receipt Date: 20120725
  Transmission Date: 20120928
  Serious: No
  Sender: FDA-Public Use
  Company Number: US-B.I. PHARMACEUTICALS,INC./RIDGEFIELD-2012-BP-16552BP

PATIENT
  Sex: Female

DRUGS (4)
  1. INHALERS [Concomitant]
     Indication: LUNG DISORDER
  2. LIPITOR [Concomitant]
     Indication: BLOOD CHOLESTEROL ABNORMAL
  3. OMEPRAZOLE [Concomitant]
     Indication: GASTRIC DISORDER
     Dates: start: 20100101
  4. SPIRIVA [Suspect]
     Indication: LUNG DISORDER
     Dosage: 18 MCG
     Route: 055
     Dates: start: 20080101

REACTIONS (3)
  - DYSPNOEA [None]
  - CONSTIPATION [None]
  - ABDOMINAL DISTENSION [None]
